FAERS Safety Report 5744152-X (Version None)
Quarter: 2008Q2

REPORT INFORMATION
  Report Type: 
  Country: None (occurrence: None)
  Receive Date: 20080520
  Receipt Date: 20080513
  Transmission Date: 20081010
  Serious: Yes (Hospitalization)
  Sender: FDA-Public Use
  Company Number: US-JNJFOC-20080502862

PATIENT
  Sex: Male
  Weight: 104.33 kg

DRUGS (3)
  1. RISPERDAL [Suspect]
     Route: 048
  2. RISPERDAL [Suspect]
     Indication: SCHIZOPHRENIA
     Route: 048
  3. ZANTAC [Concomitant]
     Indication: DYSPEPSIA

REACTIONS (3)
  - DYSPEPSIA [None]
  - INFLUENZA [None]
  - TONSILLECTOMY [None]
